FAERS Safety Report 5136346-1 (Version None)
Quarter: 2006Q4

REPORT INFORMATION
  Report Type: 
  Country: None (occurrence: None)
  Receive Date: 20061027
  Receipt Date: 20060817
  Transmission Date: 20070319
  Serious: Yes (Life-Threatening, Other)
  Sender: FDA-Public Use
  Company Number: US-MERCK-0608USA04239

PATIENT
  Age: 54 Year
  Sex: Female
  Weight: 89 kg

DRUGS (9)
  1. EMEND [Suspect]
     Indication: PROPHYLAXIS OF NAUSEA AND VOMITING
     Route: 048
     Dates: start: 20060810, end: 20060812
  2. EMEND [Suspect]
     Route: 048
  3. EMEND [Suspect]
     Route: 048
  4. COUMADIN [Suspect]
     Indication: DEEP VEIN THROMBOSIS
     Route: 048
     Dates: start: 20060807, end: 20060814
  5. COUMADIN [Suspect]
     Indication: INTERNATIONAL NORMALISED RATIO
     Route: 048
     Dates: start: 20060807, end: 20060814
  6. ALOXI [Concomitant]
     Indication: ANTIEMETIC SUPPORTIVE CARE
     Route: 042
     Dates: start: 20060720, end: 20060921
  7. DECADRON [Concomitant]
     Indication: ANTIEMETIC SUPPORTIVE CARE
     Route: 042
     Dates: start: 20060720, end: 20060921
  8. CYTOXAN [Concomitant]
     Indication: CHEMOTHERAPY
     Route: 042
     Dates: start: 20060720, end: 20060921
  9. ADRIAMYCIN PFS [Concomitant]
     Indication: CHEMOTHERAPY
     Route: 042
     Dates: start: 20060720, end: 20060921

REACTIONS (1)
  - INTERNATIONAL NORMALISED RATIO INCREASED [None]
